FAERS Safety Report 6230375-2 (Version None)
Quarter: 2009Q2

REPORT INFORMATION
  Report Type: 
  Country: None (occurrence: None)
  Receive Date: 20090611
  Receipt Date: 20090604
  Transmission Date: 20091009
  Serious: Yes (Death)
  Sender: FDA-Public Use
  Company Number: ENTC2009-0181

PATIENT
  Age: 88 Year
  Sex: Male

DRUGS (1)
  1. STALEVO 100 [Suspect]
     Indication: PARKINSON'S DISEASE
     Dosage: 2 TABLETS (100/25/200 MG) PER DAY ORAL
     Route: 048
     Dates: start: 20050601

REACTIONS (1)
  - RESPIRATORY ARREST [None]
